FAERS Safety Report 26147616 (Version 2)
Quarter: 2025Q4

REPORT INFORMATION
  Report Type: Spontaneous
  Country: US (occurrence: US)
  Receive Date: 20251211
  Receipt Date: 20251211
  Transmission Date: 20260118
  Serious: Yes (Other)
  Sender: AMGEN
  Company Number: US-AMGEN-USASL2025239758

PATIENT
  Age: 78 Year
  Sex: Male
  Weight: 109.9 kg

DRUGS (23)
  1. PREDNISONE [Suspect]
     Active Substance: PREDNISONE
     Indication: Product used for unknown indication
     Dosage: 5 MILLIGRAM, QD
     Route: 048
     Dates: start: 20240208
  2. HYDROXYCHLOROQUINE [Concomitant]
     Active Substance: HYDROXYCHLOROQUINE
     Dosage: 200 MILLIGRAM, TID
     Route: 048
     Dates: start: 20201208
  3. TRAZODONE [Concomitant]
     Active Substance: TRAZODONE HYDROCHLORIDE
     Dosage: 50 MILLIGRAM, QD
     Route: 048
     Dates: start: 20201208
  4. TRAMADOL [Concomitant]
     Active Substance: TRAMADOL
     Dosage: 50 MILLIGRAM, Q6H
     Route: 048
     Dates: start: 20201208
  5. TEMAZEPAM [Concomitant]
     Active Substance: TEMAZEPAM
     Dosage: 15 MILLIGRAM, QD
     Route: 048
     Dates: start: 20201208
  6. SOTALOL [Concomitant]
     Active Substance: SOTALOL
     Dosage: 80 MILLIGRAM, BID
     Route: 048
     Dates: start: 20201208
  7. ROPINIROLE [Concomitant]
     Active Substance: ROPINIROLE
     Dosage: 0.25 MILLIGRAM, BID
     Route: 048
     Dates: start: 20201208
  8. NITROGLYCERIN [Concomitant]
     Active Substance: NITROGLYCERIN
     Dosage: 0.4 MILLIGRAM, Q5MIN, (1ST SIGN OF ATTACK)
     Route: 060
     Dates: start: 20201208
  9. VITAMINS [Concomitant]
     Active Substance: VITAMINS
     Dosage: UNK UNK, QD
     Route: 048
  10. LISINOPRIL AND HYDROCHLOROTHIAZIDE [Concomitant]
     Active Substance: HYDROCHLOROTHIAZIDE\LISINOPRIL
     Dosage: UNK UNK, QD
     Route: 048
     Dates: start: 20201208
  11. FOLIC ACID [Concomitant]
     Active Substance: FOLIC ACID
     Dosage: 1 MILLIGRAM, QD
     Route: 048
     Dates: start: 20210915
  12. ATORVASTATIN [Concomitant]
     Active Substance: ATORVASTATIN
     Dosage: 40 MILLIGRAM, QD
     Route: 048
     Dates: start: 20210915
  13. ASPIRIN [Concomitant]
     Active Substance: ASPIRIN
     Dosage: 81 MILLIGRAM, QD
     Route: 048
     Dates: start: 20210915, end: 20250923
  14. AMLODIPINE [Concomitant]
     Active Substance: AMLODIPINE BESYLATE
     Dosage: 10 MILLIGRAM, QD
     Route: 048
     Dates: start: 20240208
  15. EZETIMIBE [Concomitant]
     Active Substance: EZETIMIBE
     Dosage: 10 MILLIGRAM, QD
     Dates: start: 20240208
  16. FESOTERODINE [Concomitant]
     Active Substance: FESOTERODINE
     Dosage: 4 MILLIGRAM, QD
     Route: 048
     Dates: start: 20240208
  17. POTASSIUM CHLORIDE [Concomitant]
     Active Substance: POTASSIUM CHLORIDE
     Dosage: 20 MILLIEQUIVALENT, BID
     Route: 048
     Dates: start: 20240208
  18. ACTEMRA [Concomitant]
     Active Substance: TOCILIZUMAB
     Dosage: 4 MILLIGRAM/KILOGRAM, Q4WK
     Route: 040
     Dates: start: 20240603
  19. ACTEMRA [Concomitant]
     Active Substance: TOCILIZUMAB
     Dosage: 4 MILLIGRAM/KILOGRAM, Q4WK
     Route: 040
     Dates: start: 20250602, end: 20250923
  20. DICLOFENAC SODIUM [Concomitant]
     Active Substance: DICLOFENAC SODIUM
     Dosage: 75 MILLIGRAM, TID
     Route: 048
     Dates: start: 20240602
  21. DOXYCYCLINE [Concomitant]
     Active Substance: DOXYCYCLINE
     Dosage: UNK
     Route: 065
  22. METHOTREXATE [Concomitant]
     Active Substance: METHOTREXATE
     Dosage: UNK
     Route: 065
  23. SIMPONI [Concomitant]
     Active Substance: GOLIMUMAB
     Route: 065

REACTIONS (16)
  - Rheumatoid arthritis [Unknown]
  - Hepatic fibrosis [Unknown]
  - Drug ineffective [Unknown]
  - Back pain [Unknown]
  - Exfoliative rash [Unknown]
  - Fatigue [Unknown]
  - Pleuritic pain [Unknown]
  - Oedema peripheral [Unknown]
  - Constipation [Unknown]
  - Dry mouth [Unknown]
  - Burning sensation [Unknown]
  - Joint swelling [Unknown]
  - Hair colour changes [Unknown]
  - Skin discolouration [Unknown]
  - Paraesthesia [Unknown]
  - Rash [Unknown]

NARRATIVE: CASE EVENT DATE: 20250101
